FAERS Safety Report 9294585 (Version 2)
Quarter: 2013Q2

REPORT INFORMATION
  Report Type: Spontaneous
  Country: US (occurrence: US)
  Receive Date: 20130517
  Receipt Date: 20130529
  Transmission Date: 20140414
  Serious: No
  Sender: FDA-Public Use
  Company Number: US-BIOGENIDEC-2013BI042526

PATIENT
  Sex: Female

DRUGS (2)
  1. AVONEX [Suspect]
     Indication: MULTIPLE SCLEROSIS
     Route: 030
     Dates: start: 20130221
  2. AVONEX [Suspect]
     Indication: MULTIPLE SCLEROSIS
     Route: 030
     Dates: start: 20130512

REACTIONS (12)
  - Injection site bruising [Not Recovered/Not Resolved]
  - Injection site haemorrhage [Recovered/Resolved]
  - Dehydration [Not Recovered/Not Resolved]
  - Vascular injury [Recovered/Resolved]
  - Increased tendency to bruise [Recovered/Resolved]
  - Ocular hyperaemia [Recovered/Resolved]
  - Feeling cold [Recovered/Resolved]
  - Haemorrhage [Recovered/Resolved]
  - Pyrexia [Unknown]
  - Chills [Unknown]
  - Influenza like illness [Recovered/Resolved]
  - Anxiety [Not Recovered/Not Resolved]
